FAERS Safety Report 8846788 (Version 1)
Quarter: 2012Q4

REPORT INFORMATION
  Report Type: 
  Country: FR (occurrence: FR)
  Receive Date: 20121018
  Receipt Date: 20121018
  Transmission Date: 20130627
  Serious: Yes (Hospitalization)
  Sender: FDA-Public Use
  Company Number: FR-ASTELLAS-2012EU009106

PATIENT
  Age: 86 Year
  Sex: Female

DRUGS (14)
  1. VESICARE [Suspect]
     Indication: URINARY RETENTION
     Dosage: 5 mg, UID/QD
     Route: 048
     Dates: end: 20120730
  2. DICLOFENAC SODIUM [Suspect]
     Dosage: 1 DF, bid
     Route: 048
     Dates: end: 20120730
  3. POTASSIUM CHLORIDE [Suspect]
     Dosage: 1 DF, UID/QD
     Route: 065
     Dates: end: 20120730
  4. CHOLECALCIFEROL [Suspect]
     Indication: OSTEOPOROSIS
     Dosage: UNK
     Route: 048
     Dates: end: 20120730
  5. CALCIUM CITRATE\CHOLECALCIFEROL [Suspect]
     Indication: OSTEOPOROSIS
     Dosage: 1 DF, UID/QD
     Route: 048
     Dates: end: 20120730
  6. NEUPRO [Suspect]
     Indication: PARKINSON^S DISEASE
     Dosage: 2 mg, bid
     Route: 048
     Dates: end: 20120730
  7. ACTONEL [Concomitant]
     Dosage: UNK
     Route: 065
  8. GAVISCON                           /00237601/ [Concomitant]
     Dosage: UNK
     Route: 065
  9. MODOPAR [Concomitant]
     Dosage: UNK
     Route: 065
  10. ATHYMIL [Concomitant]
     Dosage: UNK
     Route: 065
  11. IXPRIM [Concomitant]
     Dosage: UNK
     Route: 065
  12. IMOVANE [Concomitant]
     Dosage: UNK
     Route: 065
  13. FORLAX                             /00754501/ [Concomitant]
     Dosage: 4000 UNK, Unknown/D
     Route: 065
  14. INEXIUM /01479302/ [Concomitant]
     Dosage: UNK
     Route: 065

REACTIONS (3)
  - Renal failure acute [Recovered/Resolved]
  - Hyperkalaemia [Recovered/Resolved]
  - Hypercalcaemia [Recovered/Resolved]
